FAERS Safety Report 12179897 (Version 1)
Quarter: 2016Q1

REPORT INFORMATION
  Report Type: Spontaneous
  Country: US (occurrence: US)
  Receive Date: 20160315
  Receipt Date: 20160315
  Transmission Date: 20160526
  Serious: Yes (Other)
  Sender: FDA-Public Use
  Company Number: US-BEH-2016060012

PATIENT
  Age: 56 Year
  Sex: Female
  Weight: 85 kg

DRUGS (19)
  1. ACETAMINOPHEN. [Concomitant]
     Active Substance: ACETAMINOPHEN
  2. HIZENTRA [Suspect]
     Active Substance: HUMAN IMMUNOGLOBULIN G
     Route: 058
  3. HIZENTRA [Suspect]
     Active Substance: HUMAN IMMUNOGLOBULIN G
     Dosage: 4 GM 20 ML VIALS
  4. LIDOCAINE. [Concomitant]
     Active Substance: LIDOCAINE
  5. EPIPEN [Concomitant]
     Active Substance: EPINEPHRINE
  6. ZYRTEC [Concomitant]
     Active Substance: CETIRIZINE HYDROCHLORIDE
  7. EXCEDRIN MIGRAINE [Concomitant]
     Active Substance: ACETAMINOPHEN\ASPIRIN\CAFFEINE
  8. SYNTHROID [Concomitant]
     Active Substance: LEVOTHYROXINE SODIUM
  9. TAGAMET [Concomitant]
     Active Substance: CIMETIDINE
  10. TUMS ULTRA [Concomitant]
     Active Substance: CALCIUM CARBONATE
  11. ALEVE [Concomitant]
     Active Substance: NAPROXEN SODIUM
  12. HIZENTRA [Suspect]
     Active Substance: HUMAN IMMUNOGLOBULIN G
     Indication: IMMUNODEFICIENCY COMMON VARIABLE
     Dosage: 1 GM 5 ML VIALS
  13. BUPROPION. [Concomitant]
     Active Substance: BUPROPION
  14. PHILLIPS COLON HEALTH [Concomitant]
  15. DIPHENHYDRAMINE. [Concomitant]
     Active Substance: DIPHENHYDRAMINE
  16. LIDOCAINE/PRILOCAINE [Concomitant]
  17. LMX [Concomitant]
     Active Substance: LIDOCAINE
  18. BIAXIN [Concomitant]
     Active Substance: CLARITHROMYCIN
  19. OMEPRAZOLE. [Concomitant]
     Active Substance: OMEPRAZOLE

REACTIONS (2)
  - Streptococcal infection [Unknown]
  - Sinusitis [Unknown]

NARRATIVE: CASE EVENT DATE: 20160304
